FAERS Safety Report 11790026 (Version 1)
Quarter: 2015Q4

REPORT INFORMATION
  Report Type: Spontaneous
  Country: US (occurrence: None)
  Receive Date: 20151130
  Receipt Date: 20151130
  Transmission Date: 20160305
  Serious: Yes (Life-Threatening, Hospitalization)
  Sender: FDA-Public Use
  Company Number: None

PATIENT
  Age: 14 Year
  Sex: Female
  Weight: 52.2 kg

DRUGS (1)
  1. ISOTRETINOIN CAPSULES USP 40MG TEVA [Suspect]
     Active Substance: ISOTRETINOIN
     Indication: ACNE
     Route: 048
     Dates: start: 20151106, end: 20151112

REACTIONS (2)
  - Mood altered [None]
  - Suicide attempt [None]

NARRATIVE: CASE EVENT DATE: 20151112
